FAERS Safety Report 5943805-8 (Version None)
Quarter: 2008Q4

REPORT INFORMATION
  Report Type: 
  Country: None (occurrence: None)
  Receive Date: 20081106
  Receipt Date: 20080829
  Transmission Date: 20090506
  Serious: No
  Sender: FDA-Public Use
  Company Number: US-BAYER-200832370NA

PATIENT
  Age: 31 Year
  Sex: Female
  Weight: 122 kg

DRUGS (2)
  1. ULTRAVIST 370 [Suspect]
     Indication: COMPUTERISED TOMOGRAM ABDOMEN
     Dosage: TOTAL DAILY DOSE: 150 ML  UNIT DOSE: 500 ML
     Route: 042
     Dates: start: 20080829, end: 20080829
  2. ULTRAVIST (PHARMACY BULK) [Concomitant]
     Route: 048
     Dates: start: 20080829, end: 20080829

REACTIONS (2)
  - PRURITUS [None]
  - URTICARIA [None]
